FAERS Safety Report 23100110 (Version 1)
Quarter: 2023Q4

REPORT INFORMATION
  Report Type: Spontaneous
  Country: US (occurrence: US)
  Receive Date: 20231024
  Receipt Date: 20231024
  Transmission Date: 20240110
  Serious: No
  Sender: FDA-Public Use
  Company Number: US-SA-2023SA215654

PATIENT
  Age: 16 Year
  Sex: Female
  Weight: 45.9 kg

DRUGS (2)
  1. DUPIXENT [Suspect]
     Active Substance: DUPILUMAB
     Indication: Dermatitis atopic
     Dosage: 200 MG, QOW
     Route: 058
     Dates: start: 202307
  2. MELATONIN [Concomitant]
     Active Substance: MELATONIN
     Dosage: UNK

REACTIONS (3)
  - Sleep disorder [Unknown]
  - Dermatitis atopic [Unknown]
  - Pruritus [Unknown]

NARRATIVE: CASE EVENT DATE: 20230901
